FAERS Safety Report 6298328-6 (Version None)
Quarter: 2009Q3

REPORT INFORMATION
  Report Type: 
  Country: None (occurrence: None)
  Receive Date: 20090805
  Receipt Date: 20090723
  Transmission Date: 20100115
  Serious: Yes (Hospitalization, Other)
  Sender: FDA-Public Use
  Company Number: PHHY2009FR30956

PATIENT
  Age: 75 Year
  Sex: Female

DRUGS (3)
  1. GLEEVEC [Interacting]
     Indication: CHRONIC MYELOID LEUKAEMIA
     Dosage: 400 MG/DAY
     Dates: start: 20090123, end: 20090312
  2. ARIMIDEX [Interacting]
     Dosage: UNK
     Dates: start: 20090305, end: 20090312
  3. ZYLORIC [Suspect]
     Dosage: UNK
     Dates: start: 20090123, end: 20090312

REACTIONS (8)
  - BREAST CANCER [None]
  - DRUG INTERACTION [None]
  - DRUG LEVEL INCREASED [None]
  - FACE OEDEMA [None]
  - INFECTION [None]
  - OEDEMA PERIPHERAL [None]
  - PANCYTOPENIA [None]
  - URTICARIA [None]
